FAERS Safety Report 25852283 (Version 1)
Quarter: 2025Q3

REPORT INFORMATION
  Report Type: Report from Study
  Country: EU (occurrence: EU)
  Receive Date: 20250926
  Receipt Date: 20250926
  Transmission Date: 20251021
  Serious: Yes (Other)
  Sender: MYLAN
  Company Number: EU-GLAXOSMITHKLINE-FR2024GSK072171

PATIENT
  Age: 66 Year
  Sex: Female

DRUGS (16)
  1. PACLITAXEL [Suspect]
     Active Substance: PACLITAXEL
     Indication: Endometrial cancer recurrent
     Dates: start: 20240122, end: 20240926
  2. PACLITAXEL [Suspect]
     Active Substance: PACLITAXEL
     Route: 065
     Dates: start: 20240122, end: 20240926
  3. PACLITAXEL [Suspect]
     Active Substance: PACLITAXEL
     Route: 065
     Dates: start: 20240122, end: 20240926
  4. PACLITAXEL [Suspect]
     Active Substance: PACLITAXEL
     Dates: start: 20240122, end: 20240926
  5. CARBOPLATIN [Suspect]
     Active Substance: CARBOPLATIN
     Indication: Endometrial cancer recurrent
     Dates: start: 20240122, end: 20240926
  6. CARBOPLATIN [Suspect]
     Active Substance: CARBOPLATIN
     Route: 065
     Dates: start: 20240122, end: 20240926
  7. CARBOPLATIN [Suspect]
     Active Substance: CARBOPLATIN
     Route: 065
     Dates: start: 20240122, end: 20240926
  8. CARBOPLATIN [Suspect]
     Active Substance: CARBOPLATIN
     Dates: start: 20240122, end: 20240926
  9. DOSTARLIMAB [Suspect]
     Active Substance: DOSTARLIMAB
     Indication: Endometrial cancer recurrent
  10. DOSTARLIMAB [Suspect]
     Active Substance: DOSTARLIMAB
  11. DOSTARLIMAB [Suspect]
     Active Substance: DOSTARLIMAB
     Route: 042
  12. DOSTARLIMAB [Suspect]
     Active Substance: DOSTARLIMAB
     Route: 042
  13. DOSTARLIMAB [Suspect]
     Active Substance: DOSTARLIMAB
  14. DOSTARLIMAB [Suspect]
     Active Substance: DOSTARLIMAB
  15. DOSTARLIMAB [Suspect]
     Active Substance: DOSTARLIMAB
     Route: 042
  16. DOSTARLIMAB [Suspect]
     Active Substance: DOSTARLIMAB
     Route: 042

REACTIONS (2)
  - Malignant neoplasm progression [Unknown]
  - Arthralgia [Unknown]

NARRATIVE: CASE EVENT DATE: 20240425
